FAERS Safety Report 21156069 (Version 1)
Quarter: 2022Q3

REPORT INFORMATION
  Report Type: Spontaneous
  Country: US (occurrence: None)
  Receive Date: 20220731
  Receipt Date: 20220731
  Transmission Date: 20221026
  Serious: Yes (Death)
  Sender: FDA-Public Use
  Company Number: None

PATIENT
  Age: 69 Year
  Sex: Male
  Weight: 70 kg

DRUGS (16)
  1. TACROLIMUS [Suspect]
     Active Substance: TACROLIMUS
     Indication: Lung transplant
     Dosage: 0.5 MG EVENING ORAL
     Route: 048
     Dates: start: 20210704, end: 20220727
  2. TACROLIMUS [Suspect]
     Active Substance: TACROLIMUS
     Indication: Lung transplant
     Dosage: 1 MG BID ORAL?
     Route: 048
     Dates: start: 20210704, end: 20220727
  3. TAMSULOSIN [Concomitant]
     Active Substance: TAMSULOSIN
  4. AZITHROMYCIN [Concomitant]
     Active Substance: AZITHROMYCIN
  5. CALCIUM CARBONATE [Concomitant]
     Active Substance: CALCIUM CARBONATE
  6. VITAMIN D3 [Concomitant]
     Active Substance: CHOLECALCIFEROL
  7. ALENDRONATE [Concomitant]
     Active Substance: ALENDRONATE SODIUM
  8. GABAPENTIN [Concomitant]
     Active Substance: GABAPENTIN
  9. EZETIMIBE [Concomitant]
     Active Substance: EZETIMIBE
  10. DAPSONE [Concomitant]
     Active Substance: DAPSONE
  11. PREDNISONE [Concomitant]
     Active Substance: PREDNISONE
  12. OMEPRAZOLE [Concomitant]
     Active Substance: OMEPRAZOLE
  13. MIRTAZAPINE [Concomitant]
     Active Substance: MIRTAZAPINE
  14. MYCOPHENOLIC ACID [Concomitant]
     Active Substance: MYCOPHENOLIC ACID
  15. TIZANIDINE [Concomitant]
     Active Substance: TIZANIDINE
  16. TRAZODONE [Concomitant]
     Active Substance: TRAZODONE HYDROCHLORIDE

REACTIONS (3)
  - Systemic infection [None]
  - Shock [None]
  - Therapy non-responder [None]

NARRATIVE: CASE EVENT DATE: 20220727
